FAERS Safety Report 16211925 (Version 2)
Quarter: 2019Q2

REPORT INFORMATION
  Report Type: Spontaneous
  Country: US (occurrence: US)
  Receive Date: 20190418
  Receipt Date: 20190521
  Transmission Date: 20190711
  Serious: Yes (Hospitalization)
  Sender: FDA-Public Use
  Company Number: US-ASTRAZENECA-2019SE57485

PATIENT
  Age: 901 Month
  Sex: Female
  Weight: 49.9 kg

DRUGS (13)
  1. ASPIRIN. [Concomitant]
     Active Substance: ASPIRIN
     Dosage: 81.0MG UNKNOWN
     Route: 048
  2. GLUCOSAMINE [Concomitant]
     Active Substance: GLUCOSAMINE
     Dosage: UNKNOWN
     Route: 065
  3. ZOFRAN [Concomitant]
     Active Substance: ONDANSETRON HYDROCHLORIDE
     Dosage: 8.0MG AS REQUIRED
     Route: 048
  4. LYNPARZA [Suspect]
     Active Substance: OLAPARIB
     Indication: OVARIAN CANCER STAGE III
     Dosage: 150 MG IN MORNING AND 300 MG HS
     Route: 048
  5. CALCIUM WITH VIATMIN D [Concomitant]
     Dosage: 500 MG (1,250MG)-200 UNIT PER TABLET UNKNOWN
     Route: 048
  6. FISH OIL-OMEGA-3 FATTY ACIDS [Concomitant]
     Dosage: UNKNOWN
     Route: 065
  7. ATIVAN [Concomitant]
     Active Substance: LORAZEPAM
     Indication: ANXIETY
     Route: 048
  8. COMPAZINE [Concomitant]
     Active Substance: PROCHLORPERAZINE MALEATE
     Dosage: 10.0MG UNKNOWN
     Route: 048
  9. FLAXSEED [Concomitant]
     Active Substance: FLAX SEED
     Dosage: UNKNOWN
     Route: 065
  10. NEXIUM [Suspect]
     Active Substance: ESOMEPRAZOLE MAGNESIUM
     Route: 048
  11. MULITVITAMIN [Concomitant]
     Dosage: UNKNOWN
     Route: 065
  12. LYNPARZA [Suspect]
     Active Substance: OLAPARIB
     Indication: OVARIAN CANCER STAGE III
     Route: 048
     Dates: start: 20190101, end: 20190410
  13. LYNPARZA [Suspect]
     Active Substance: OLAPARIB
     Indication: OVARIAN CANCER STAGE III
     Route: 048

REACTIONS (6)
  - Fatigue [Recovered/Resolved]
  - Febrile neutropenia [Recovered/Resolved]
  - White blood cell count decreased [Unknown]
  - Body temperature increased [Unknown]
  - Neutrophil count decreased [Unknown]
  - Haemoglobin decreased [Unknown]

NARRATIVE: CASE EVENT DATE: 201903
